FAERS Safety Report 4335339-1 (Version None)
Quarter: 2004Q2

REPORT INFORMATION
  Report Type: 
  Country: None (occurrence: None)
  Receive Date: 20040409
  Receipt Date: 20040330
  Transmission Date: 20050107
  Serious: Yes (Hospitalization, Other)
  Sender: FDA-Public Use
  Company Number: PHBS2004CL04324

PATIENT
  Age: 40 Year
  Sex: Male
  Weight: 80 kg

DRUGS (6)
  1. TEGRETOL [Suspect]
     Indication: PANIC ATTACK
     Dosage: 100 MG, QD
     Route: 048
     Dates: start: 20031215
  2. TEGRETOL [Suspect]
     Dosage: 400 MG, BID
     Route: 048
     Dates: end: 20040210
  3. RAVOTRIL [Concomitant]
     Dosage: 1 MG, TID
     Route: 065
     Dates: end: 20040201
  4. RAVOTRIL [Concomitant]
     Dosage: 2 MG, TID
     Route: 065
  5. MIGRANAL [Concomitant]
  6. BESEROL [Concomitant]

REACTIONS (11)
  - ARTHRALGIA [None]
  - BIOPSY BONE MARROW ABNORMAL [None]
  - DIFFICULTY IN WALKING [None]
  - GASTRITIS EROSIVE [None]
  - HAEMATOCRIT DECREASED [None]
  - JOINT EFFUSION [None]
  - JOINT SWELLING [None]
  - MARROW HYPERPLASIA [None]
  - MYELODYSPLASTIC SYNDROME [None]
  - PAIN [None]
  - URTICARIA PAPULAR [None]
